FAERS Safety Report 8422942-2 (Version None)
Quarter: 2012Q2

REPORT INFORMATION
  Report Type: 
  Country: None (occurrence: None)
  Receive Date: 20120608
  Receipt Date: 20120514
  Transmission Date: 20120825
  Serious: Yes (Disabling)
  Sender: FDA-Public Use
  Company Number: JP-GLAXOSMITHKLINE-B0802137A

PATIENT
  Sex: Female

DRUGS (3)
  1. LOXONIN [Concomitant]
     Indication: PAIN
     Dosage: 120MG PER DAY
     Route: 048
     Dates: start: 20120507, end: 20120508
  2. AMARYL [Concomitant]
     Indication: DIABETES MELLITUS
     Dosage: 3MG PER DAY
     Route: 048
  3. VALTREX [Suspect]
     Indication: HERPES ZOSTER
     Dosage: 2000MG PER DAY
     Route: 048
     Dates: start: 20120507, end: 20120509

REACTIONS (5)
  - RENAL FAILURE ACUTE [None]
  - BLOOD UREA INCREASED [None]
  - DECREASED APPETITE [None]
  - NAUSEA [None]
  - BLOOD CREATININE INCREASED [None]
